FAERS Safety Report 6150897-2 (Version None)
Quarter: 2009Q2

REPORT INFORMATION
  Report Type: 
  Country: None (occurrence: None)
  Receive Date: 20090408
  Receipt Date: 20090401
  Transmission Date: 20091009
  Serious: Yes (Hospitalization)
  Sender: FDA-Public Use
  Company Number: FABR-1000753

PATIENT
  Age: 56 Year
  Sex: Male

DRUGS (3)
  1. FABRAZYME [Suspect]
     Indication: FABRY'S DISEASE
     Dosage: 35 MG, Q2W, INTRAVENOUS
     Route: 042
     Dates: start: 20080901
  2. PLAVIX [Concomitant]
  3. OXYCODONE HCL [Concomitant]

REACTIONS (7)
  - BACK PAIN [None]
  - GASTRIC ULCER [None]
  - INFUSION RELATED REACTION [None]
  - MUSCULOSKELETAL CHEST PAIN [None]
  - NAUSEA [None]
  - PYREXIA [None]
  - VOMITING [None]
